FAERS Safety Report 7937766-X (Version None)
Quarter: 2011Q4

REPORT INFORMATION
  Report Type: 
  Country: None (occurrence: None)
  Receive Date: 20111123
  Receipt Date: 20111118
  Transmission Date: 20120403
  Serious: Yes (Hospitalization)
  Sender: FDA-Public Use
  Company Number: PHHO2011HK019008

PATIENT
  Sex: Female
  Weight: 38.4 kg

DRUGS (3)
  1. CARBOPLATIN [Suspect]
     Indication: GASTRIC CANCER
     Dosage: 485 MG, QW3
     Route: 042
     Dates: start: 20110908, end: 20111103
  2. PACLITAXEL [Suspect]
     Indication: GASTRIC CANCER
     Dosage: 250 MG, QW3
     Route: 042
     Dates: start: 20110908, end: 20111103
  3. EVEROLIMUS [Suspect]
     Indication: GASTRIC CANCER
     Dosage: 5 MG, QD
     Route: 048
     Dates: start: 20110908, end: 20111113

REACTIONS (4)
  - FEBRILE NEUTROPENIA [None]
  - HAEMOGLOBIN DECREASED [None]
  - HAEMATOCRIT DECREASED [None]
  - RED BLOOD CELL COUNT DECREASED [None]
